FAERS Safety Report 15258084 (Version 6)
Quarter: 2018Q4

REPORT INFORMATION
  Report Type: Spontaneous
  Country: CA (occurrence: CA)
  Receive Date: 20180809
  Receipt Date: 20181022
  Transmission Date: 20190204
  Serious: Yes (Other)
  Sender: FDA-Public Use
  Company Number: CA-BEH-2018093518

PATIENT
  Age: 59 Year
  Sex: Male

DRUGS (8)
  1. ALBUREX [Suspect]
     Active Substance: ALBUMIN HUMAN
     Dosage: A POS
     Route: 065
     Dates: start: 20171226
  2. ALBUREX [Suspect]
     Active Substance: ALBUMIN HUMAN
     Indication: PRODUCT USED FOR UNKNOWN INDICATION
     Dosage: A POS
     Route: 065
     Dates: start: 20170210
  3. ALBUREX [Suspect]
     Active Substance: ALBUMIN HUMAN
     Dosage: A POS
     Route: 042
     Dates: start: 20171210
  4. ALBUREX [Suspect]
     Active Substance: ALBUMIN HUMAN
     Dosage: A POS
     Route: 065
     Dates: start: 20171210
  5. ALBUREX [Suspect]
     Active Substance: ALBUMIN HUMAN
     Dosage: A POS
     Route: 065
     Dates: start: 20171228
  6. ALBUREX [Suspect]
     Active Substance: ALBUMIN HUMAN
     Indication: PRODUCT USED FOR UNKNOWN INDICATION
     Dosage: 2 DOSES, A POS
     Route: 065
     Dates: start: 20171224
  7. ALBUREX [Suspect]
     Active Substance: ALBUMIN HUMAN
     Dosage: A POS
     Route: 065
     Dates: start: 20171226
  8. ALBUREX [Suspect]
     Active Substance: ALBUMIN HUMAN
     Dosage: 3 DOSES, A POS
     Route: 065
     Dates: start: 20171227

REACTIONS (1)
  - Hepatitis E virus test positive [Unknown]

NARRATIVE: CASE EVENT DATE: 20180212
